FAERS Safety Report 9553677 (Version 2)
Quarter: 2014Q3

REPORT INFORMATION
  Report Type: Spontaneous
  Country: US (occurrence: None)
  Receive Date: 20130815
  Receipt Date: 20140815
  Transmission Date: 20150326
  Serious: Yes (Other)
  Sender: FDA-Public Use
  Company Number: ADR-2013-01017

PATIENT
  Age: 56 Year

DRUGS (1)
  1. BACLOFEN. [Suspect]
     Active Substance: BACLOFEN
     Dosage: PROGRAMMED TO DELIVER 3.04 MCG/DAY

REACTIONS (1)
  - Granuloma [None]

NARRATIVE: CASE EVENT DATE: 20130606
